FAERS Safety Report 24586106 (Version 1)
Quarter: 2024Q4

REPORT INFORMATION
  Report Type: Spontaneous
  Country: CA (occurrence: CA)
  Receive Date: 20241106
  Receipt Date: 20241106
  Transmission Date: 20250115
  Serious: Yes (Death)
  Sender: EISAI
  Company Number: CA-Eisai-EC-2024-178162

PATIENT
  Age: 70 Year
  Sex: Female

DRUGS (4)
  1. DONEPEZIL [Suspect]
     Active Substance: DONEPEZIL
     Indication: Corticobasal degeneration
     Dosage: DOSE AND FREQUENCY WERE UNKNOWN
     Route: 048
  2. GALANTAMINE [Suspect]
     Active Substance: GALANTAMINE
     Indication: Corticobasal degeneration
     Dosage: DOSE AND FREQUENCY WERE UNKNOWN
  3. MEMANTINE [Suspect]
     Active Substance: MEMANTINE
     Indication: Corticobasal degeneration
     Dosage: DOSE AND FREQUENCY WERE UNKNOWN
  4. RIVASTIGMINE [Suspect]
     Active Substance: RIVASTIGMINE
     Indication: Corticobasal degeneration
     Dosage: DOSE AND FREQUENCY WERE UNKNOWN

REACTIONS (2)
  - Condition aggravated [Fatal]
  - Drug ineffective [Fatal]
